FAERS Safety Report 22238749 (Version 1)
Quarter: 2023Q2

REPORT INFORMATION
  Report Type: Report from Study
  Country: US (occurrence: US)
  Receive Date: 20230421
  Receipt Date: 20230421
  Transmission Date: 20230722
  Serious: Yes (Other)
  Sender: FDA-Public Use
  Company Number: US-UCBSA-2023019953

PATIENT
  Sex: Female
  Weight: 59.9 kg

DRUGS (7)
  1. LEVETIRACETAM [Suspect]
     Active Substance: LEVETIRACETAM
     Indication: Seizure
     Dosage: 1000 MILLIGRAM, 3X/DAY (TID)
     Route: 048
  2. NAYZILAM [Concomitant]
     Active Substance: MIDAZOLAM
     Indication: Product used for unknown indication
     Dosage: 5 MILLIGRAM (0.1 ML) SPRAY; PLACE 1 SPRAY INTO EACH NOSTRIL 2 (TWO) TIMES DAILY AS NEEDED FOR UP TO
  3. MIRTAZAPINE [Concomitant]
     Active Substance: MIRTAZAPINE
     Indication: Product used for unknown indication
     Dosage: 15 MILLIGRAM DISINTEGRATING TABLET
     Route: 048
  4. METOCLOPRAMIDE HYDROCHLORIDE [Concomitant]
     Active Substance: METOCLOPRAMIDE HYDROCHLORIDE
     Indication: Product used for unknown indication
     Dosage: 10 MILLIGRAM (1 TABLET EVERY 6 (SIX) HOURS AS NEEDED (WITH TORADOL FOR HEADACHE))
     Route: 048
  5. SPRINTEC [Concomitant]
     Active Substance: ETHINYL ESTRADIOL\NORGESTIMATE
     Indication: Product used for unknown indication
     Dosage: 0.25-35 MG-MCG PER TABLET
     Route: 048
  6. ZOFRAN [Concomitant]
     Active Substance: ONDANSETRON HYDROCHLORIDE
     Indication: Nausea
     Dosage: 4 MILLIGRAM, 3X/DAY (TID)
     Route: 048
  7. SYMBICORT [Concomitant]
     Active Substance: BUDESONIDE\FORMOTEROL FUMARATE DIHYDRATE
     Indication: Product used for unknown indication
     Dosage: 160-4.5 MCG/ ACTUATION INHALER, 2 TIMES DAILY

REACTIONS (5)
  - Seizure [Unknown]
  - Urinary tract infection [Unknown]
  - Decreased appetite [Unknown]
  - Depression [Unknown]
  - Anxiety [Unknown]
